FAERS Safety Report 9536925 (Version 1)
Quarter: 2013Q3

REPORT INFORMATION
  Report Type: Spontaneous
  Country: US (occurrence: None)
  Receive Date: 20130918
  Receipt Date: 20130918
  Transmission Date: 20140515
  Serious: Yes (Life-Threatening)
  Sender: FDA-Public Use
  Company Number: None

PATIENT
  Age: 59 Year
  Sex: Female
  Weight: 77.5 kg

DRUGS (12)
  1. ENALAPRIL [Suspect]
     Indication: HYPERTENSION
     Dosage: 20 MG BID ORAL
     Route: 048
     Dates: start: 20110616
  2. CLOPIDOGREL, [Concomitant]
  3. HYRALAZINE, [Concomitant]
  4. DULOXETINE, [Concomitant]
  5. FOLIC ACID, [Concomitant]
  6. SIMVASTATIN, [Concomitant]
  7. PRAMIPEXOLE, [Concomitant]
  8. LANSOPRAZOLE, [Concomitant]
  9. OXYCODONE, [Concomitant]
  10. NIFEDIPINE, [Concomitant]
  11. GABAPENTIN, [Concomitant]
  12. SENNA [Concomitant]

REACTIONS (3)
  - Eye swelling [None]
  - Lip swelling [None]
  - Hypersensitivity [None]
